FAERS Safety Report 10149622 (Version 1)
Quarter: 2014Q2

REPORT INFORMATION
  Report Type: Spontaneous
  Country: US (occurrence: None)
  Receive Date: 20140501
  Receipt Date: 20140501
  Transmission Date: 20141212
  Serious: Yes (Hospitalization)
  Sender: FDA-Public Use
  Company Number: None

PATIENT
  Age: 60 Year
  Sex: Male

DRUGS (8)
  1. PHENYTOIN [Suspect]
     Indication: CONVULSION PROPHYLAXIS
     Dates: end: 20130817
  2. ENOXAPARIN [Concomitant]
  3. ASA [Concomitant]
  4. ATORVASTATIN [Concomitant]
  5. CARBAMAZOPINE [Concomitant]
  6. NICOTINE [Concomitant]
  7. FLUTICASONE AND SALMETEROL [Concomitant]
  8. TIOTROPIUM [Concomitant]

REACTIONS (7)
  - Ataxia [None]
  - Muscular weakness [None]
  - Headache [None]
  - Musculoskeletal stiffness [None]
  - Tremor [None]
  - Anticonvulsant drug level increased [None]
  - Hemiparesis [None]
